FAERS Safety Report 8223362-6 (Version None)
Quarter: 2012Q1

REPORT INFORMATION
  Report Type: 
  Country: None (occurrence: None)
  Receive Date: 20120313
  Receipt Date: 20120229
  Transmission Date: 20120608
  Serious: Yes (Other)
  Sender: FDA-Public Use
  Company Number: DE-1189185

PATIENT
  Age: 85 Year
  Sex: Female

DRUGS (1)
  1. FLUORESCITE [Suspect]
     Dosage: (0.7 ML INTRATHECAL)
     Route: 037

REACTIONS (3)
  - ASPIRATION [None]
  - LUNG INFILTRATION [None]
  - OFF LABEL USE [None]
